FAERS Safety Report 8810168 (Version 1)
Quarter: 2012Q4

REPORT INFORMATION
  Report Type: Report from Study
  Country: RU (occurrence: RU)
  Receive Date: 20120926
  Receipt Date: 20120926
  Transmission Date: 20130627
  Serious: Yes (Other)
  Sender: FDA-Public Use
  Company Number: RU-ROCHE-1126153

PATIENT
  Sex: Male

DRUGS (3)
  1. PEGASYS [Suspect]
     Indication: HEPATITIS C
     Route: 058
  2. COPEGUS [Suspect]
     Indication: HEPATITIS C
     Route: 048
  3. ALISPORIVIR [Concomitant]
     Indication: HEPATITIS C

REACTIONS (8)
  - Leukopenia [Recovered/Resolved]
  - Neutropenia [Recovered/Resolved]
  - Anaemia [Recovering/Resolving]
  - Injection site reaction [Recovered/Resolved]
  - Lymphocytosis [Not Recovered/Not Resolved]
  - Monocytosis [Not Recovered/Not Resolved]
  - Platelet aggregation [Not Recovered/Not Resolved]
  - Neutrophil toxic granulation present [Not Recovered/Not Resolved]
